FAERS Safety Report 5491663-0 (Version None)
Quarter: 2007Q4

REPORT INFORMATION
  Report Type: 
  Country: None (occurrence: None)
  Receive Date: 20071022
  Receipt Date: 20071017
  Transmission Date: 20080405
  Serious: Yes (Hospitalization)
  Sender: FDA-Public Use
  Company Number: IT-BAYER-200715262GDS

PATIENT
  Age: 63 Year
  Sex: Male
  Weight: 88 kg

DRUGS (27)
  1. SORAFENIB [Suspect]
     Indication: NON-SMALL CELL LUNG CANCER
     Dosage: TOTAL DAILY DOSE: 800 MG
     Route: 048
     Dates: start: 20070719, end: 20071003
  2. GEMCITABINE HCL [Suspect]
     Indication: NON-SMALL CELL LUNG CANCER
     Route: 042
     Dates: start: 20070726, end: 20070726
  3. GEMCITABINE HCL [Suspect]
     Route: 042
     Dates: start: 20070816, end: 20070816
  4. GEMCITABINE HCL [Suspect]
     Route: 042
     Dates: start: 20070906, end: 20070906
  5. GEMCITABINE HCL [Suspect]
     Route: 042
     Dates: start: 20070927, end: 20070927
  6. GEMCITABINE HCL [Suspect]
     Route: 042
     Dates: start: 20070913, end: 20070913
  7. GEMCITABINE HCL [Suspect]
     Route: 042
     Dates: start: 20070719, end: 20070719
  8. CISPLATIN [Suspect]
     Indication: NON-SMALL CELL LUNG CANCER
     Route: 042
     Dates: start: 20070719, end: 20070719
  9. CISPLATIN [Suspect]
     Route: 042
     Dates: start: 20070816, end: 20070816
  10. CISPLATIN [Suspect]
     Route: 042
     Dates: start: 20070906, end: 20070906
  11. CISPLATIN [Suspect]
     Route: 042
     Dates: start: 20070927, end: 20070927
  12. NAVOBAN [Concomitant]
     Indication: PROPHYLAXIS OF NAUSEA AND VOMITING
     Route: 048
     Dates: start: 20070721, end: 20070723
  13. NAVOBAN [Concomitant]
     Route: 048
     Dates: start: 20070818, end: 20070820
  14. PLASIL [Concomitant]
     Indication: PROPHYLAXIS OF NAUSEA AND VOMITING
     Route: 048
     Dates: start: 20070818, end: 20070821
  15. PLASIL [Concomitant]
     Route: 048
     Dates: start: 20070721, end: 20070724
  16. CONTRAMAL [Concomitant]
     Indication: PAIN PROPHYLAXIS
     Route: 065
     Dates: end: 20070726
  17. MS CONTIN [Concomitant]
     Indication: PAIN PROPHYLAXIS
     Dates: start: 20070726
  18. PURSENNID [Concomitant]
     Indication: CONSTIPATION
     Route: 048
     Dates: start: 20070726, end: 20070823
  19. SELEPARINA [Concomitant]
     Indication: THROMBOSIS PROPHYLAXIS
     Route: 065
     Dates: start: 20070709
  20. NEXIUM [Concomitant]
     Indication: PROPHYLAXIS
     Route: 065
     Dates: start: 20070726
  21. IBUPROFEN [Concomitant]
     Indication: PAIN PROPHYLAXIS
     Route: 065
     Dates: start: 20070726
  22. LOPERAMIDE HCL [Concomitant]
     Indication: DIARRHOEA
     Route: 065
     Dates: start: 20070730, end: 20070801
  23. MYCOSTATIN [Concomitant]
     Indication: ORAL FUNGAL INFECTION
     Route: 065
     Dates: start: 20070730, end: 20070814
  24. CORSODYL [Concomitant]
     Indication: ORAL FUNGAL INFECTION
     Route: 048
     Dates: start: 20070818
  25. EFFEXOR [Concomitant]
     Indication: ANXIETY
     Route: 065
     Dates: start: 20070818
  26. METFORMINA [Concomitant]
     Indication: DIABETES MELLITUS
     Route: 065
     Dates: start: 20050101
  27. CRESTOR [Concomitant]
     Indication: HYPERCHOLESTEROLAEMIA
     Route: 065
     Dates: start: 20050701

REACTIONS (3)
  - HYPOCALCAEMIA [None]
  - HYPOKALAEMIA [None]
  - HYPONATRAEMIA [None]
